FAERS Safety Report 19938630 (Version 1)
Quarter: 2021Q4

REPORT INFORMATION
  Report Type: Spontaneous
  Country: US (occurrence: US)
  Receive Date: 20211011
  Receipt Date: 20211011
  Transmission Date: 20220304
  Serious: No
  Sender: FDA-Public Use
  Company Number: 2021A740875

PATIENT
  Sex: Male

DRUGS (1)
  1. CRESTOR [Suspect]
     Active Substance: ROSUVASTATIN CALCIUM
     Indication: Blood cholesterol increased
     Dosage: UNKNOWN UNKNOWN
     Route: 048

REACTIONS (5)
  - Arthropathy [Unknown]
  - Dysstasia [Unknown]
  - Back disorder [Unknown]
  - Joint injury [Unknown]
  - Hyperproteinaemia [Unknown]
